FAERS Safety Report 9000720 (Version 1)
Quarter: 2013Q1

REPORT INFORMATION
  Report Type: Spontaneous
  Country: US (occurrence: US)
  Receive Date: 20130107
  Receipt Date: 20130107
  Transmission Date: 20140127
  Serious: Yes (Death)
  Sender: FDA-Public Use
  Company Number: PHEH2013US000614

PATIENT
  Age: 74 Year
  Sex: Male

DRUGS (8)
  1. GLEEVEC [Suspect]
     Dosage: 100 MG, TID
     Route: 048
  2. SIMVASTATIN [Concomitant]
     Dosage: 40 MG, UNK
  3. LOSARTAN + HIDROCLOROTIAZIDA [Concomitant]
     Dosage: 50-12.5
  4. RAMIPRIL [Concomitant]
     Dosage: 10 MG, UNK
  5. SERTRALINE [Concomitant]
     Dosage: 50 MG, UNK
  6. METOPROLOL TARTRATE [Concomitant]
     Dosage: 25 MG, UNK
  7. NORVASC [Concomitant]
     Dosage: 2.5 MG, UNK
  8. AMLODIPINE [Concomitant]
     Dosage: 2.5 MG, UNK

REACTIONS (1)
  - Death [Fatal]
